FAERS Safety Report 21230234 (Version 1)
Quarter: 2022Q3

REPORT INFORMATION
  Report Type: Spontaneous
  Country: FR (occurrence: FR)
  Receive Date: 20220818
  Receipt Date: 20220818
  Transmission Date: 20221026
  Serious: Yes (Hospitalization)
  Sender: FDA-Public Use
  Company Number: None

PATIENT
  Age: 65 Year
  Sex: Male

DRUGS (3)
  1. KEYTRUDA [Suspect]
     Active Substance: PEMBROLIZUMAB
     Indication: Lung adenocarcinoma
     Dosage: 200 MILLIGRAM, Q3W
     Route: 042
     Dates: start: 20220708, end: 20220708
  2. CARBOPLATIN [Suspect]
     Active Substance: CARBOPLATIN
     Indication: Lung adenocarcinoma
     Dosage: 450 MILLIGRAM, Q3W
     Route: 042
     Dates: start: 20220708, end: 20220708
  3. PEMETREXED [Suspect]
     Active Substance: PEMETREXED
     Indication: Lung adenocarcinoma
     Dosage: 825 MILLIGRAM, Q3W
     Route: 042
     Dates: start: 20220708, end: 20220708

REACTIONS (1)
  - Retinal artery occlusion [Recovering/Resolving]

NARRATIVE: CASE EVENT DATE: 20220715
